FAERS Safety Report 12505943 (Version 2)
Quarter: 2016Q3

REPORT INFORMATION
  Report Type: Spontaneous
  Country: US (occurrence: US)
  Receive Date: 20160628
  Receipt Date: 20160803
  Transmission Date: 20161109
  Serious: Yes (Other)
  Sender: FDA-Public Use
  Company Number: US-UNITED THERAPEUTICS-UNT-2016-010249

PATIENT
  Age: 85 Year
  Sex: Female
  Weight: 102.4 kg

DRUGS (1)
  1. TYVASO [Suspect]
     Active Substance: TREPROSTINIL
     Indication: PULMONARY HYPERTENSION
     Dosage: 18-54 MICROGRAMS, QID
     Dates: start: 20160329

REACTIONS (2)
  - Cardiac failure congestive [Unknown]
  - Right ventricular failure [Unknown]

NARRATIVE: CASE EVENT DATE: 201606
